FAERS Safety Report 8465306 (Version 2)
Quarter: 2012Q4

REPORT INFORMATION
  Report Type: 
  Country: US (occurrence: US)
  Receive Date: 20120319
  Receipt Date: 20121217
  Transmission Date: 20130627
  Serious: Yes (Congenital Anomaly, Other)
  Sender: FDA-Public Use
  Company Number: US-PFIZER INC-2012067244

PATIENT
  Sex: Male

DRUGS (5)
  1. ZOLOFT [Suspect]
     Indication: DEPRESSION
     Dosage: 25 mg, 2x/day
     Route: 064
  2. ZOLOFT [Suspect]
     Indication: NERVOUS
     Dosage: 50 mg, UNK
     Route: 064
     Dates: start: 20021024
  3. CLONAZEPAM [Concomitant]
     Dosage: 0.5 mg, UNK
     Route: 064
  4. OVRAL [Concomitant]
     Dosage: UNK
     Route: 064
  5. NESTABS [Concomitant]
     Dosage: UNK
     Route: 064

REACTIONS (7)
  - Maternal exposure timing unspecified [Unknown]
  - Multiple congenital abnormalities [Not Recovered/Not Resolved]
  - Cleft palate [Unknown]
  - Hypospadias [Unknown]
  - Developmental delay [Not Recovered/Not Resolved]
  - Chordee [Unknown]
  - Arrhythmia [Unknown]
